FAERS Safety Report 4885447-1 (Version None)
Quarter: 2005Q4

REPORT INFORMATION
  Report Type: 
  Country: None (occurrence: None)
  Receive Date: 20051220
  Receipt Date: 20050304
  Transmission Date: 20060501
  Serious: Yes (Disabling)
  Sender: FDA-Public Use
  Company Number: HQWYE974209MAR05

PATIENT
  Sex: Male

DRUGS (3)
  1. EFFEXOR XR [Suspect]
     Indication: DEPRESSION
     Dosage: ^ 112 MG ^; SEE IMAGE
     Dates: start: 20030901, end: 20050101
  2. EFFEXOR XR [Suspect]
     Indication: DEPRESSION
     Dosage: ^ 112 MG ^; SEE IMAGE
     Dates: start: 20050101, end: 20050101
  3. EFFEXOR XR [Suspect]
     Indication: DEPRESSION
     Dosage: ^ 112 MG ^; SEE IMAGE
     Dates: start: 20050101

REACTIONS (6)
  - ASTHENIA [None]
  - DRUG WITHDRAWAL SYNDROME [None]
  - HEADACHE [None]
  - LETHARGY [None]
  - NAUSEA [None]
  - VERTIGO [None]
